FAERS Safety Report 14631895 (Version 3)
Quarter: 2018Q2

REPORT INFORMATION
  Report Type: Report from Study
  Country: MX (occurrence: MX)
  Receive Date: 20180313
  Receipt Date: 20180420
  Transmission Date: 20180711
  Serious: Yes (Life-Threatening, Other)
  Sender: FDA-Public Use
  Company Number: PHHY2018MX041209

PATIENT
  Age: 65 Year
  Sex: Female
  Weight: 54 kg

DRUGS (3)
  1. ACLASTA [Suspect]
     Active Substance: ZOLEDRONIC ACID
     Indication: OSTEOPOROSIS PROPHYLAXIS
     Dosage: 1 DF (5/100MG), Q12MO
     Route: 030
     Dates: start: 2008
  2. ACLASTA [Suspect]
     Active Substance: ZOLEDRONIC ACID
     Indication: OSTEOARTHRITIS
     Dosage: 1 DF, Q12MO
     Route: 030
     Dates: start: 2010, end: 2010
  3. EVISTA [Concomitant]
     Active Substance: RALOXIFENE HYDROCHLORIDE
     Indication: CALCIUM DEFICIENCY
     Dosage: 1 DF, QD
     Route: 048
     Dates: start: 2010

REACTIONS (13)
  - Pulmonary oedema [Unknown]
  - Gallbladder disorder [Unknown]
  - Bone pain [Not Recovered/Not Resolved]
  - Product use in unapproved indication [Unknown]
  - Apparent death [Unknown]
  - Myocardial infarction [Recovering/Resolving]
  - Intestinal perforation [Unknown]
  - Gastrointestinal neoplasm [Unknown]
  - Hypothyroidism [Not Recovered/Not Resolved]
  - Angina pectoris [Recovered/Resolved]
  - Peritonitis [Unknown]
  - Brain neoplasm malignant [Unknown]
  - Pneumonia [Recovered/Resolved]

NARRATIVE: CASE EVENT DATE: 2008
